FAERS Safety Report 24293340 (Version 1)
Quarter: 2024Q3

REPORT INFORMATION
  Report Type: Spontaneous
  Country: US (occurrence: None)
  Receive Date: 20240906
  Receipt Date: 20240906
  Transmission Date: 20241016
  Serious: No
  Sender: DOMPE FARMACEUTICI
  Company Number: US-FARMAPROD-202308-202401-0099

PATIENT
  Age: 33 Year
  Sex: Female

DRUGS (10)
  1. OXERVATE [Suspect]
     Active Substance: CENEGERMIN-BKBJ
     Indication: Neurotrophic keratopathy
     Route: 047
     Dates: start: 20240108
  2. VITAMINS [Concomitant]
     Active Substance: VITAMINS
     Dosage: GUMMIES
  3. FISH OIL [Concomitant]
     Active Substance: FISH OIL
     Dosage: 100-160 MG
  4. COD LIVER OIL [Concomitant]
     Active Substance: COD LIVER OIL
  5. VITAMIN C [Concomitant]
     Active Substance: ASCORBIC ACID
  6. VITAMIN D [Concomitant]
     Active Substance: VITAMIN D NOS
     Dosage: 400 IU
  7. REFRESH OPTIVE MEGA-3 [Concomitant]
     Active Substance: CARBOXYMETHYLCELLULOSE SODIUM\GLYCERIN\POLYSORBATE 80
  8. CEQUA [Concomitant]
     Active Substance: CYCLOSPORINE
  9. REGENER-EYES [Concomitant]
  10. SKIN,HAIR AND NAILS [Concomitant]

REACTIONS (1)
  - Eye pain [Unknown]

NARRATIVE: CASE EVENT DATE: 20240101
